FAERS Safety Report 11349121 (Version 1)
Quarter: 2015Q3

REPORT INFORMATION
  Report Type: Spontaneous
  Country: DE (occurrence: DE)
  Receive Date: 20150807
  Receipt Date: 20150807
  Transmission Date: 20151125
  Serious: Yes (Congenital Anomaly, Other)
  Sender: FDA-Public Use
  Company Number: DE-009507513-1507DEU013346

PATIENT
  Age: 1 Day
  Sex: Female
  Weight: 2.43 kg

DRUGS (5)
  1. FOLIC ACID. [Concomitant]
     Active Substance: FOLIC ACID
     Dosage: UNK
     Route: 064
     Dates: start: 20140724, end: 20150219
  2. RHOPHYLAC [Concomitant]
     Active Substance: HUMAN RHO(D) IMMUNE GLOBULIN
     Dosage: UNK
     Route: 064
     Dates: start: 20150107, end: 20150107
  3. LOSARTAN POTASSIUM. [Suspect]
     Active Substance: LOSARTAN POTASSIUM
     Dosage: 10 MG, QD
     Route: 064
     Dates: start: 20140604, end: 20140731
  4. BISOPROLOL [Suspect]
     Active Substance: BISOPROLOL
     Dosage: IN THE BEGINNING 5 MG/DAY
     Route: 064
     Dates: start: 20140604
  5. BISOPROLOL [Suspect]
     Active Substance: BISOPROLOL
     Dosage: LATER REDUCTION TO 2.5 MG/DAY
     Route: 064
     Dates: end: 20150220

REACTIONS (6)
  - Talipes [Recovered/Resolved with Sequelae]
  - Patent ductus arteriosus [Unknown]
  - Small for dates baby [Recovered/Resolved]
  - Respiratory disorder neonatal [Recovered/Resolved]
  - Atrial septal defect [Unknown]
  - Umbilical hernia [Unknown]

NARRATIVE: CASE EVENT DATE: 20150220
